FAERS Safety Report 25962916 (Version 1)
Quarter: 2025Q4

REPORT INFORMATION
  Report Type: Spontaneous
  Country: EU (occurrence: EU)
  Receive Date: 20251027
  Receipt Date: 20251027
  Transmission Date: 20260118
  Serious: Yes (Other)
  Sender: PFIZER
  Company Number: EU-PFIZER INC-PV202500124479

PATIENT
  Age: 70 Year
  Sex: Female

DRUGS (3)
  1. METHYLPREDNISOLONE [Suspect]
     Active Substance: METHYLPREDNISOLONE
     Indication: Polyarthritis
     Dosage: 8 MG
     Dates: start: 2007
  2. METHYLPREDNISOLONE [Suspect]
     Active Substance: METHYLPREDNISOLONE
     Dosage: 4 MG
     Dates: end: 2010
  3. CHLOROQUINE [Suspect]
     Active Substance: CHLOROQUINE
     Indication: Polyarthritis
     Dosage: 1 TABLET PER DAY

REACTIONS (3)
  - Compression fracture [Unknown]
  - Osteoporosis [Unknown]
  - Fractured sacrum [Unknown]
